FAERS Safety Report 8042851-0 (Version None)
Quarter: 2012Q1

REPORT INFORMATION
  Report Type: 
  Country: None (occurrence: None)
  Receive Date: 20120112
  Receipt Date: 20120104
  Transmission Date: 20120608
  Serious: No
  Sender: FDA-Public Use
  Company Number: US-PFIZER INC-2012003897

PATIENT
  Sex: Female
  Weight: 49.887 kg

DRUGS (3)
  1. PROAIR HFA [Concomitant]
     Indication: ASTHMA
     Dosage: UNK, AS NEEDED
  2. OXYCODONE [Concomitant]
     Indication: SPINAL FRACTURE
     Dosage: 10 MG, 3X/DAY
  3. CHANTIX [Suspect]
     Indication: SMOKING CESSATION THERAPY
     Dosage: 0.5 MG, DAILY

REACTIONS (1)
  - NAUSEA [None]
